FAERS Safety Report 7334972-2 (Version None)
Quarter: 2011Q1

REPORT INFORMATION
  Report Type: 
  Country: None (occurrence: None)
  Receive Date: 20110307
  Receipt Date: 20110301
  Transmission Date: 20110831
  Serious: Yes (Other)
  Sender: FDA-Public Use
  Company Number: PT-ROCHE-762699

PATIENT
  Sex: Female
  Weight: 92 kg

DRUGS (2)
  1. HERCEPTIN [Suspect]
     Dosage: LOADING DOSE, FORM: INFUSION
     Route: 042
     Dates: start: 20110216
  2. PACLITAXEL [Concomitant]

REACTIONS (4)
  - PYREXIA [None]
  - TREMOR [None]
  - DYSPNOEA [None]
  - WHEEZING [None]
